FAERS Safety Report 8884610 (Version 1)
Quarter: 2012Q4

REPORT INFORMATION
  Report Type: 
  Country: US (occurrence: US)
  Receive Date: 20121104
  Receipt Date: 20121104
  Transmission Date: 20130627
  Serious: Yes (Other)
  Sender: FDA-Public Use
  Company Number: US-BAYER-2012-114595

PATIENT
  Sex: Male
  Weight: 90.7 kg

DRUGS (1)
  1. BAYER CHEWABLE LOW DOSE BABY ASPIRIN TABLET ORANGE [Suspect]
     Dosage: 1 DF, QD
     Route: 048
     Dates: start: 200910, end: 20121019

REACTIONS (3)
  - Haemorrhagic diathesis [Unknown]
  - Skin haemorrhage [Recovered/Resolved]
  - Limb injury [Recovered/Resolved]
